FAERS Safety Report 23921904 (Version 1)
Quarter: 2024Q2

REPORT INFORMATION
  Report Type: Spontaneous
  Country: JP (occurrence: JP)
  Receive Date: 20240530
  Receipt Date: 20240530
  Transmission Date: 20240715
  Serious: Yes (Other)
  Sender: FDA-Public Use
  Company Number: JP-ARDELYX-2024ARDX001064

PATIENT

DRUGS (3)
  1. TENAPANOR HYDROCHLORIDE [Suspect]
     Active Substance: TENAPANOR HYDROCHLORIDE
     Indication: Hyperphosphataemia
     Dosage: 5 MILLIGRAM, BID, PHOZEVEL WAS PRESCRIBED IN THE PATIENT AT TWICE DAILY IN THE MORNING AND EVENING
     Route: 048
     Dates: start: 20240220
  2. TENAPANOR HYDROCHLORIDE [Suspect]
     Active Substance: TENAPANOR HYDROCHLORIDE
     Dosage: 10 MILLIGRAM, BID, PHOZEVEL WAS PRESCRIBED IN THE PATIENT AT TWICE DAILY IN THE MORNING AND EVENING
     Route: 048
  3. SENNA LEAF [Concomitant]
     Active Substance: SENNA LEAF
     Indication: Product used for unknown indication
     Dosage: UNK UNK, PRN,(MORNING, NOON, EVENING)
     Route: 065

REACTIONS (2)
  - Blood potassium increased [Recovering/Resolving]
  - Diarrhoea [Unknown]

NARRATIVE: CASE EVENT DATE: 20240226
